FAERS Safety Report 9146068 (Version 1)
Quarter: 2013Q1

REPORT INFORMATION
  Report Type: Spontaneous
  Country: US (occurrence: None)
  Receive Date: 20130227
  Receipt Date: 20130227
  Transmission Date: 20140127
  Serious: Yes (Life-Threatening)
  Sender: FDA-Public Use
  Company Number: None

PATIENT
  Age: 59 Year
  Sex: Male
  Weight: 58.06 kg

DRUGS (2)
  1. NEVIRAPINE [Suspect]
  2. VIRAMUNE [Suspect]

REACTIONS (1)
  - Renal failure [None]
